FAERS Safety Report 4638540-2 (Version None)
Quarter: 2005Q2

REPORT INFORMATION
  Report Type: 
  Country: None (occurrence: None)
  Receive Date: 20050418
  Receipt Date: 20050418
  Transmission Date: 20051028
  Serious: Yes (Other)
  Sender: FDA-Public Use
  Company Number: None

PATIENT
  Age: 95 Year

DRUGS (2)
  1. BETAXOLOL [Suspect]
     Indication: OPEN ANGLE GLAUCOMA
     Dosage: BID OU
     Route: 047
  2. AZOPT [Suspect]
     Indication: OPEN ANGLE GLAUCOMA
     Dosage: BID OU
     Route: 047

REACTIONS (2)
  - EYE IRRITATION [None]
  - INSTILLATION SITE IRRITATION [None]
